FAERS Safety Report 7738375-8 (Version None)
Quarter: 2011Q3

REPORT INFORMATION
  Report Type: 
  Country: None (occurrence: None)
  Receive Date: 20110908
  Receipt Date: 20110824
  Transmission Date: 20111222
  Serious: Yes (Death, Hospitalization, Other)
  Sender: FDA-Public Use
  Company Number: GB-WATSON-2011-13963

PATIENT
  Age: 46 Year
  Sex: Female

DRUGS (2)
  1. MYCOPHENOLATE MEFETIL [Suspect]
     Indication: HEART TRANSPLANT
  2. CYCLOSPORINE [Suspect]
     Indication: HEART TRANSPLANT

REACTIONS (4)
  - ACUTE HEPATIC FAILURE [None]
  - HEPATITIS [None]
  - ADENOVIRUS INFECTION [None]
  - OPPORTUNISTIC INFECTION [None]
